FAERS Safety Report 7149426-6 (Version None)
Quarter: 2010Q4

REPORT INFORMATION
  Report Type: 
  Country: None (occurrence: None)
  Receive Date: 20101209
  Receipt Date: 20100819
  Transmission Date: 20110411
  Serious: No
  Sender: FDA-Public Use
  Company Number: US-KINGPHARMUSA00001-K201001052

PATIENT
  Sex: Male
  Weight: 79.819 kg

DRUGS (7)
  1. EMBEDA [Suspect]
     Indication: BACK PAIN
     Dosage: 30 MG, BID
     Route: 048
     Dates: start: 20100721, end: 20100819
  2. EMBEDA [Suspect]
     Indication: POST LAMINECTOMY SYNDROME
  3. LIDOCAINE [Concomitant]
     Indication: BACK PAIN
  4. NABUMETONE [Concomitant]
     Indication: BACK PAIN
  5. SOMA [Concomitant]
  6. VIAGRA [Concomitant]
  7. ZANAFLEX [Concomitant]
     Indication: MUSCLE SPASMS

REACTIONS (4)
  - DRUG INEFFECTIVE [None]
  - DRUG WITHDRAWAL SYNDROME [None]
  - HYPERHIDROSIS [None]
  - RESTLESSNESS [None]
